FAERS Safety Report 8322567-3 (Version None)
Quarter: 2012Q2

REPORT INFORMATION
  Report Type: 
  Country: None (occurrence: None)
  Receive Date: 20120430
  Receipt Date: 20120420
  Transmission Date: 20120825
  Serious: Yes (Hospitalization, Other)
  Sender: FDA-Public Use
  Company Number: CA-JNJFOC-20120315255

PATIENT
  Sex: Female

DRUGS (6)
  1. SEROQUEL [Concomitant]
     Indication: BIPOLAR DISORDER
     Route: 065
  2. REMICADE [Suspect]
     Indication: CROHN'S DISEASE
     Route: 042
     Dates: start: 20110401, end: 20110801
  3. IMURAN [Concomitant]
     Route: 065
  4. PREDNISONE [Concomitant]
     Route: 065
  5. VALPROATE SODIUM [Concomitant]
     Indication: BIPOLAR DISORDER
     Route: 065
  6. WELLABUTRIN [Concomitant]
     Indication: BIPOLAR DISORDER
     Route: 065

REACTIONS (1)
  - INTESTINAL OBSTRUCTION [None]
